FAERS Safety Report 8857550 (Version 1)
Quarter: 2012Q4

REPORT INFORMATION
  Report Type: 
  Country: CN (occurrence: CN)
  Receive Date: 20121024
  Receipt Date: 20121024
  Transmission Date: 20130627
  Serious: Yes (Other)
  Sender: FDA-Public Use
  Company Number: CN-GLAXOSMITHKLINE-B0839702A

PATIENT
  Age: 66 Year
  Sex: Female
  Weight: 70 kg

DRUGS (3)
  1. SALBUTAMOL SULPHATE [Suspect]
     Indication: WHEEZING
     Dosage: .5ML Three times per day
     Route: 055
     Dates: start: 20110224, end: 20110225
  2. BUDESONIDE [Concomitant]
     Indication: PRODUCT USED FOR UNKNOWN INDICATION
     Route: 055
  3. IPRATROPIUM BROMIDE [Concomitant]
     Indication: PRODUCT USED FOR UNKNOWN INDICATION
     Route: 055

REACTIONS (2)
  - Convulsions local [Recovering/Resolving]
  - Asthenia [Recovering/Resolving]
